FAERS Safety Report 5268981-4 (Version None)
Quarter: 2007Q1

REPORT INFORMATION
  Report Type: 
  Country: None (occurrence: None)
  Receive Date: 20070313
  Receipt Date: 20070301
  Transmission Date: 20070707
  Serious: Yes (Disabling)
  Sender: FDA-Public Use
  Company Number: GXKR2007CH02232

PATIENT
  Age: 42 Year
  Sex: Male
  Weight: 66 kg

DRUGS (10)
  1. LISTRIL (NGX)  (LISINOPRIL) TABLETS, 5MG [Suspect]
     Dosage: 5 MG, QD, ORAL
     Route: 048
     Dates: start: 20060301, end: 20061213
  2. KEPPRA [Suspect]
     Dosage: 750 MG, BID, ORAL
     Route: 048
     Dates: start: 20061123, end: 20061229
  3. LORAZEPAM [Suspect]
     Dosage: 5 MG, QD, ORAL
     Route: 048
  4. PRAZINE /NET/ (PROMAZINE HYDROCHLORIDE) [Suspect]
     Dosage: 100 MG, QD, ORAL
     Route: 048
  5. SUBUTEX [Suspect]
     Dosage: 1 MG, QD, ORAL
     Route: 048
  6. DORMICUM ROCHE (MIDAZOLAM MALEATE) [Suspect]
     Dosage: 30 MG, QD, ORAL
     Route: 048
  7. ROHYPNOL (FLUNITRAZEPAM) FILM-COATED TABLET, 1MG [Suspect]
     Dosage: 1 MG, QD, ORAL
     Route: 048
  8. BELOC ZOK (METOPROLOL SUCCINATE) TABLET [Suspect]
     Dosage: 50 MG, QD, ORAL
     Route: 048
  9. PLAVIX [Suspect]
  10. SELIPRAN (PRAVASTATIN SODIUM) TABLET, 40 MG [Concomitant]

REACTIONS (3)
  - HALLUCINATION [None]
  - PARANOIA [None]
  - PHARMACEUTICAL PRODUCT COMPLAINT [None]
